FAERS Safety Report 8618243-X (Version None)
Quarter: 2012Q3

REPORT INFORMATION
  Report Type: 
  Country: None (occurrence: None)
  Receive Date: 20120824
  Receipt Date: 20120817
  Transmission Date: 20120928
  Serious: Yes (Other)
  Sender: FDA-Public Use
  Company Number: JP-MERCK-1208JPN009131

PATIENT

DRUGS (1)
  1. FAMOTIDINE [Suspect]
     Route: 048

REACTIONS (1)
  - OESOPHAGEAL CANDIDIASIS [None]
